FAERS Safety Report 7202863-3 (Version None)
Quarter: 2010Q4

REPORT INFORMATION
  Report Type: 
  Country: None (occurrence: None)
  Receive Date: 20101229
  Receipt Date: 20101220
  Transmission Date: 20110411
  Serious: Yes (Hospitalization, Other)
  Sender: FDA-Public Use
  Company Number: US-TEVA-260505USA

PATIENT
  Age: 39 Year
  Sex: Male

DRUGS (3)
  1. AMIODARONE HYDROCHLORIDE [Suspect]
  2. PROCAINAMIDE [Suspect]
  3. SOTALOL HCL [Suspect]

REACTIONS (1)
  - COMPLICATIONS OF TRANSPLANTED HEART [None]
